FAERS Safety Report 10200618 (Version 4)
Quarter: 2014Q2

REPORT INFORMATION
  Report Type: Spontaneous
  Country: JP (occurrence: JP)
  Receive Date: 20140528
  Receipt Date: 20140627
  Transmission Date: 20141212
  Serious: Yes (Hospitalization)
  Sender: FDA-Public Use
  Company Number: JP-009507513-1405JPN010106

PATIENT
  Age: 74 Year
  Sex: Male
  Weight: 56 kg

DRUGS (13)
  1. JANUVIA TABLETS 50MG [Suspect]
     Indication: TYPE 2 DIABETES MELLITUS
     Dosage: 50 MG, QD
     Route: 048
     Dates: start: 20140308, end: 20140509
  2. NEXAVAR [Suspect]
     Indication: HEPATOCELLULAR CARCINOMA
     Dosage: 400 MG ONCE A DAY
     Route: 048
     Dates: start: 20140205, end: 20140509
  3. CALONAL [Concomitant]
     Indication: CANCER PAIN
     Dosage: 1200 MG, TID
     Route: 048
     Dates: start: 201311
  4. FENTORA [Concomitant]
     Indication: CANCER PAIN
     Dosage: 2 MG, QD
     Route: 062
     Dates: start: 201311
  5. MONILAC [Concomitant]
     Indication: NEUROSIS
     Dosage: 30 MG, QD
     Route: 048
     Dates: start: 201311
  6. MAGMITT [Concomitant]
     Indication: GASTRITIS
     Dosage: 500 MG, TID
     Route: 048
     Dates: start: 201311
  7. DAI-KENCHU-TO [Concomitant]
     Indication: ABDOMINAL DISTENSION
     Dosage: 5 G, TID
     Route: 048
     Dates: start: 201311
  8. NEXIUM [Concomitant]
     Dosage: DAILY DOSAGE UNKNOWN
     Route: 048
  9. GASMOTIN [Concomitant]
     Dosage: DAILY DOSAGE UNKNOWN
     Route: 048
  10. UREPEARL [Concomitant]
     Dosage: DAILY DOSAGE UNKNOWN
     Route: 061
  11. POLARAMINE [Concomitant]
     Dosage: DAILY DOSAGE UNKNOWN
     Route: 065
  12. RINDERON VG [Concomitant]
     Dosage: DAILY DOSAGE UNKNOWN
     Route: 061
  13. ZYPREXA [Concomitant]
     Dosage: DAILY DOSAGE UNKNOWN
     Route: 048

REACTIONS (1)
  - Interstitial lung disease [Recovering/Resolving]
